FAERS Safety Report 17760212 (Version 1)
Quarter: 2020Q2

REPORT INFORMATION
  Report Type: Spontaneous
  Country: US (occurrence: US)
  Receive Date: 20200508
  Receipt Date: 20200508
  Transmission Date: 20200714
  Serious: Yes (Other)
  Sender: FDA-Public Use
  Company Number: US-BRISTOL-MYERS SQUIBB COMPANY-BMS-2020-036422

PATIENT
  Age: 72 Year
  Sex: Female
  Weight: 68.04 kg

DRUGS (5)
  1. LORAZEPAM. [Concomitant]
     Active Substance: LORAZEPAM
     Indication: PRODUCT USED FOR UNKNOWN INDICATION
     Dosage: 0.5 MILLIGRAM TWICE DAILY AS NEEDED
     Route: 065
  2. DILTIAZEM [DILTIAZEM HYDROCHLORIDE] [Concomitant]
     Active Substance: DILTIAZEM HYDROCHLORIDE
     Indication: PRODUCT USED FOR UNKNOWN INDICATION
     Route: 065
  3. ELIQUIS [Suspect]
     Active Substance: APIXABAN
     Indication: CEREBROVASCULAR ACCIDENT PROPHYLAXIS
     Dosage: 5 MILLIGRAM, BID
     Route: 048
     Dates: start: 2018
  4. OXYCODON [Concomitant]
     Active Substance: OXYCODONE
     Indication: CANCER SURGERY
     Dosage: 5 MILLIGRAM
     Route: 065
     Dates: start: 20200501
  5. OXYCODON [Concomitant]
     Active Substance: OXYCODONE
     Indication: PRODUCT USED FOR UNKNOWN INDICATION
     Dosage: 5 UNK
     Route: 065
     Dates: start: 20200502

REACTIONS (9)
  - Insomnia [Unknown]
  - Hypoacusis [Unknown]
  - Pain [Unknown]
  - Breast cancer [Unknown]
  - Palpitations [Unknown]
  - Breast pain [Unknown]
  - Heart rate increased [Unknown]
  - Axillary pain [Unknown]
  - Eye pain [Unknown]

NARRATIVE: CASE EVENT DATE: 20200410
